FAERS Safety Report 9958290 (Version 1)
Quarter: 2014Q1

REPORT INFORMATION
  Report Type: Report from Study
  Country: US (occurrence: US)
  Receive Date: 20140304
  Receipt Date: 20140304
  Transmission Date: 20141002
  Serious: No
  Sender: FDA-Public Use
  Company Number: US-ABBVIE-13P-163-1093419-00

PATIENT
  Age: 36 Year
  Sex: Male

DRUGS (13)
  1. HUMIRA [Suspect]
     Indication: PSORIASIS
     Route: 058
     Dates: start: 20120920
  2. TOPAMAX [Concomitant]
     Indication: ANGER
  3. FLUVOXAMINE [Concomitant]
     Indication: OBSESSIVE-COMPULSIVE DISORDER
     Dosage: 2 IN THE MORNING, 1 IN THE EVENING
  4. BENZTROPINE [Concomitant]
     Indication: PROPHYLAXIS
     Dosage: 0.5MG DAILY
  5. BENZTROPINE [Concomitant]
     Indication: DROOLING
  6. ZYPREXA [Concomitant]
     Indication: ANXIETY
     Dosage: 5MG IN THE MIDDLE OF THE DAY, 2.5MG AT NIGHT TIME.
  7. ABILIFY [Concomitant]
     Indication: DRUG THERAPY
     Dosage: IN THE EVENING
  8. FISH OIL [Concomitant]
     Indication: PRODUCT USED FOR UNKNOWN INDICATION
  9. ECHINACEA [Concomitant]
     Indication: PRODUCT USED FOR UNKNOWN INDICATION
  10. VITAMIN C [Concomitant]
     Indication: PRODUCT USED FOR UNKNOWN INDICATION
  11. NIACIN [Concomitant]
     Indication: PRODUCT USED FOR UNKNOWN INDICATION
  12. ASTELIN [Concomitant]
     Indication: HYPERSENSITIVITY
  13. VITAMIN D3 [Concomitant]
     Indication: PRODUCT USED FOR UNKNOWN INDICATION
     Dosage: 1000MG DAILY

REACTIONS (5)
  - Abnormal behaviour [Recovered/Resolved]
  - Abnormal behaviour [Recovered/Resolved]
  - Screaming [Recovered/Resolved]
  - Mental disorder [Recovered/Resolved]
  - Treatment noncompliance [Recovered/Resolved]
